FAERS Safety Report 16274047 (Version 1)
Quarter: 2019Q2

REPORT INFORMATION
  Report Type: Spontaneous
  Country: US (occurrence: US)
  Receive Date: 20190503
  Receipt Date: 20190503
  Transmission Date: 20190711
  Serious: Yes (Other)
  Sender: FDA-Public Use
  Company Number: US-ROCHE-2310449

PATIENT
  Sex: Male
  Weight: 77.18 kg

DRUGS (2)
  1. AVASTIN [Suspect]
     Active Substance: BEVACIZUMAB
     Indication: NEOVASCULAR AGE-RELATED MACULAR DEGENERATION
     Dosage: VERY SMALL STANDARD DOSE
     Route: 065
     Dates: start: 2015
  2. TECENTRIQ [Suspect]
     Active Substance: ATEZOLIZUMAB
     Indication: NEOVASCULAR AGE-RELATED MACULAR DEGENERATION
     Route: 042
     Dates: start: 2015

REACTIONS (6)
  - Intentional product use issue [Unknown]
  - Off label use [Unknown]
  - Ureteric obstruction [Not Recovered/Not Resolved]
  - Metastatic carcinoma of the bladder [Not Recovered/Not Resolved]
  - Pain [Not Recovered/Not Resolved]
  - Ureteral disorder [Not Recovered/Not Resolved]
